FAERS Safety Report 21298197 (Version 12)
Quarter: 2025Q3

REPORT INFORMATION
  Report Type: Report from Study
  Country: US (occurrence: US)
  Receive Date: 20220906
  Receipt Date: 20250905
  Transmission Date: 20251021
  Serious: Yes (Hospitalization, Other)
  Sender: TAKEDA
  Company Number: US-TAKEDA-2017BLT001598

PATIENT
  Age: 73 Year
  Sex: Female

DRUGS (2)
  1. HUMAN IMMUNOGLOBULIN G [Suspect]
     Active Substance: HUMAN IMMUNOGLOBULIN G
     Indication: Primary immunodeficiency syndrome
     Dosage: 30 GRAM, MONTHLY
  2. HUMAN IMMUNOGLOBULIN G [Suspect]
     Active Substance: HUMAN IMMUNOGLOBULIN G
     Indication: Immunodeficiency common variable

REACTIONS (25)
  - Cataract [Unknown]
  - Renal cancer recurrent [Unknown]
  - Pancreatic carcinoma [Unknown]
  - Drug hypersensitivity [Unknown]
  - Limb injury [Unknown]
  - Wound infection [Unknown]
  - Pyoderma gangrenosum [Unknown]
  - Renal failure [Unknown]
  - Insurance issue [Unknown]
  - Sensitive skin [Unknown]
  - Fall [Unknown]
  - Skin laceration [Unknown]
  - Ultrasound abdomen abnormal [Unknown]
  - Tongue ulceration [Unknown]
  - Cardiac disorder [Unknown]
  - Electrocardiogram abnormal [Unknown]
  - Irritability [Unknown]
  - Abdominal discomfort [Unknown]
  - Balance disorder [Unknown]
  - Pain in extremity [Unknown]
  - Dyspnoea [Unknown]
  - Headache [Unknown]
  - Fatigue [Unknown]
  - Dizziness [Unknown]
  - Nausea [Unknown]

NARRATIVE: CASE EVENT DATE: 20250303
